FAERS Safety Report 13891742 (Version 2)
Quarter: 2017Q3

REPORT INFORMATION
  Report Type: Spontaneous
  Country: FR (occurrence: FR)
  Receive Date: 20170822
  Receipt Date: 20170915
  Transmission Date: 20171127
  Serious: Yes (Hospitalization)
  Sender: FDA-Public Use
  Company Number: FR-PFIZER INC-2017357834

PATIENT
  Age: 72 Year
  Sex: Female

DRUGS (15)
  1. SOLU-MEDROL [Suspect]
     Active Substance: METHYLPREDNISOLONE SODIUM SUCCINATE
     Dosage: 5 MG/KG, UNK
     Route: 041
     Dates: start: 20170623, end: 20170623
  2. LANTUS [Concomitant]
     Active Substance: INSULIN GLARGINE
  3. SOLU-MEDROL [Suspect]
     Active Substance: METHYLPREDNISOLONE SODIUM SUCCINATE
     Dosage: 20 MG, UNK
     Route: 041
     Dates: start: 20170625, end: 20170625
  4. DEXERYL /00557601/ [Concomitant]
     Active Substance: GLYCERIN\PARAFFIN
     Dosage: UNK
  5. FOSRENOL [Concomitant]
     Active Substance: LANTHANUM CARBONATE
     Dosage: UNK
  6. SOLU-MEDROL [Suspect]
     Active Substance: METHYLPREDNISOLONE SODIUM SUCCINATE
     Indication: RENAL TRANSPLANT
     Dosage: 10 MG/KG, UNK
     Route: 041
     Dates: start: 20170622, end: 20170622
  7. SOLU-MEDROL [Suspect]
     Active Substance: METHYLPREDNISOLONE SODIUM SUCCINATE
     Dosage: 10 MG, UNK
     Route: 041
     Dates: start: 20170626, end: 20170626
  8. CARDENSIEL [Concomitant]
     Active Substance: BISOPROLOL FUMARATE
     Dosage: UNK
  9. INEXIUM [Suspect]
     Active Substance: ESOMEPRAZOLE
     Route: 048
  10. KARDEGIC [Concomitant]
     Active Substance: ASPIRIN LYSINE
     Dosage: UNK
  11. TAHOR [Suspect]
     Active Substance: ATORVASTATIN CALCIUM
     Dosage: 80 MG, 1X/DAY
     Route: 048
  12. ZYMAD [Concomitant]
     Active Substance: CHOLECALCIFEROL
  13. SOLU-MEDROL [Suspect]
     Active Substance: METHYLPREDNISOLONE SODIUM SUCCINATE
     Dosage: 2 MG/KG, UNK
     Route: 041
     Dates: start: 20170624, end: 20170624
  14. NOVONORM [Concomitant]
     Active Substance: REPAGLINIDE
     Dosage: UNK
  15. LASILIX SPECIAL /00032601/ [Concomitant]
     Active Substance: FUROSEMIDE
     Dosage: UNK

REACTIONS (2)
  - Cholestasis [Recovering/Resolving]
  - Hepatocellular injury [Recovering/Resolving]

NARRATIVE: CASE EVENT DATE: 20170625
